FAERS Safety Report 5055799-0 (Version None)
Quarter: 2006Q3

REPORT INFORMATION
  Report Type: 
  Country: None (occurrence: None)
  Receive Date: 20060718
  Receipt Date: 20060718
  Transmission Date: 20061208
  Serious: Yes (Hospitalization)
  Sender: FDA-Public Use
  Company Number: None

PATIENT
  Sex: Female
  Weight: 63.4 kg

DRUGS (10)
  1. ERBITUX [Suspect]
     Indication: ADENOCARCINOMA PANCREAS
     Dosage: 69.6 MG/435 MG  WEEKLY EVERY OTHER WEEK IV
     Route: 042
     Dates: start: 20060620
  2. ERBITUX [Suspect]
     Indication: ADENOCARCINOMA PANCREAS
     Dosage: 69.6 MG/435 MG  WEEKLY EVERY OTHER WEEK IV
     Route: 042
     Dates: start: 20060627
  3. ERBITUX [Suspect]
     Indication: ADENOCARCINOMA PANCREAS
     Dosage: 69.6 MG/435 MG  WEEKLY EVERY OTHER WEEK IV
     Route: 042
     Dates: start: 20060705
  4. GEMZAR [Suspect]
     Indication: ADENOCARCINOMA PANCREAS
     Dosage: 1740 MG WEEKLY EVERY OTHER WEEK IV
     Route: 042
     Dates: start: 20060620
  5. GEMZAR [Suspect]
     Indication: ADENOCARCINOMA PANCREAS
     Dosage: 1740 MG WEEKLY EVERY OTHER WEEK IV
     Route: 042
     Dates: start: 20060705
  6. OXALIPLATIN [Suspect]
     Indication: ADENOCARCINOMA PANCREAS
     Dosage: 174 MG EVERY OTHER WEEK IV
     Route: 042
     Dates: start: 20060620
  7. OXALIPLATIN [Suspect]
     Indication: ADENOCARCINOMA PANCREAS
     Dosage: 174 MG EVERY OTHER WEEK IV
     Route: 042
     Dates: start: 20060705
  8. BENAZEPRIL HYDROCHLORIDE [Concomitant]
  9. SYNTHROID [Concomitant]
  10. MULTIVITAMIN [Concomitant]

REACTIONS (5)
  - ABDOMINAL PAIN [None]
  - CHILLS [None]
  - NAUSEA [None]
  - PYREXIA [None]
  - VOMITING [None]
